FAERS Safety Report 6324260-5 (Version None)
Quarter: 2009Q3

REPORT INFORMATION
  Report Type: 
  Country: None (occurrence: None)
  Receive Date: 20090824
  Receipt Date: 20090527
  Transmission Date: 20100115
  Serious: No
  Sender: FDA-Public Use
  Company Number: US-ABBOTT-09P-163-0574403-00

PATIENT
  Sex: Female
  Weight: 124.85 kg

DRUGS (8)
  1. NIASPAN [Suspect]
     Indication: FAMILIAL RISK FACTOR
     Dosage: 1000 MG QD X 1 MONTH, INCREASED TO 2000 MG QD, PT CHANGED TO QHS AFTER SEVERE
     Dates: start: 20090401
  2. NIASPAN [Suspect]
     Indication: CEREBROVASCULAR ACCIDENT
  3. NIASPAN [Suspect]
     Indication: MYOCARDIAL INFARCTION
  4. CRESTOR [Concomitant]
     Indication: DRUG USE FOR UNKNOWN INDICATION
     Route: 048
  5. AVAPRO [Concomitant]
     Indication: DRUG USE FOR UNKNOWN INDICATION
     Route: 048
  6. CARDIAZEM [Concomitant]
     Indication: DRUG USE FOR UNKNOWN INDICATION
     Route: 048
  7. COREG [Concomitant]
     Indication: DRUG USE FOR UNKNOWN INDICATION
     Route: 048
  8. PLAVIX [Concomitant]
     Indication: DRUG USE FOR UNKNOWN INDICATION
     Route: 048

REACTIONS (1)
  - FLUSHING [None]
